FAERS Safety Report 19056491 (Version 1)
Quarter: 2021Q1

REPORT INFORMATION
  Report Type: Spontaneous
  Country: GB (occurrence: GB)
  Receive Date: 20210325
  Receipt Date: 20210325
  Transmission Date: 20210420
  Serious: Yes (Other)
  Sender: FDA-Public Use
  Company Number: GB-MYLANLABS-2021M1017297

PATIENT
  Age: 6 Year
  Sex: Female
  Weight: 16 kg

DRUGS (4)
  1. FLUTICASONE. [Concomitant]
     Active Substance: FLUTICASONE
     Dosage: 2 DOSAGE FORM, BID
     Route: 055
     Dates: start: 20190912
  2. MONTELUKAST [Suspect]
     Active Substance: MONTELUKAST SODIUM
     Indication: PRODUCT USED FOR UNKNOWN INDICATION
     Dosage: 5 MILLIGRAM
     Dates: end: 202009
  3. CETRABEN EMOLLIENT BATH ADDITIVE [Concomitant]
     Dosage: AT SCHOOL
     Dates: start: 20201012
  4. SALBUTAMOL A [Concomitant]
     Dosage: 2 DOSAGE FORM, PRN
     Route: 055
     Dates: start: 20190912

REACTIONS (7)
  - Intentional self-injury [Recovering/Resolving]
  - Decreased appetite [Not Recovered/Not Resolved]
  - Hallucinations, mixed [Recovering/Resolving]
  - Nausea [Recovering/Resolving]
  - Anxiety [Not Recovered/Not Resolved]
  - Aggression [Recovering/Resolving]
  - Obsessive-compulsive disorder [Unknown]
